FAERS Safety Report 10142063 (Version 1)
Quarter: 2014Q2

REPORT INFORMATION
  Report Type: Spontaneous
  Country: US (occurrence: US)
  Receive Date: 20140429
  Receipt Date: 20140429
  Transmission Date: 20141212
  Serious: No
  Sender: FDA-Public Use
  Company Number: US-ASTRAZENECA-2014SE24172

PATIENT
  Age: 8 Year
  Sex: Male
  Weight: 54.4 kg

DRUGS (2)
  1. PULMICORT FLEXHALER [Suspect]
     Indication: ASTHMA
     Dosage: 90 MCG, 2 PUFFS BID
     Route: 055
  2. PULMICORT FLEXHALER [Suspect]
     Indication: ASTHMA
     Dosage: 90 MCG, 2 PUFFS DAILY
     Route: 055
     Dates: start: 2013

REACTIONS (4)
  - Dental caries [Unknown]
  - Psychomotor hyperactivity [Unknown]
  - Off label use [Unknown]
  - Wrong technique in drug usage process [Unknown]
